FAERS Safety Report 25071406 (Version 2)
Quarter: 2025Q1

REPORT INFORMATION
  Report Type: Spontaneous
  Country: US (occurrence: US)
  Receive Date: 20250312
  Receipt Date: 20250327
  Transmission Date: 20250408
  Serious: No
  Sender: MERCK SHARP & DOHME LLC
  Company Number: US-009507513-2255594

PATIENT
  Age: 71 Year
  Sex: Female
  Weight: 55.2 kg

DRUGS (26)
  1. WINREVAIR [Suspect]
     Active Substance: SOTATERCEPT-CSRK
     Indication: Product used for unknown indication
  2. WINREVAIR [Suspect]
     Active Substance: SOTATERCEPT-CSRK
  3. WINREVAIR [Suspect]
     Active Substance: SOTATERCEPT-CSRK
  4. WINREVAIR [Suspect]
     Active Substance: SOTATERCEPT-CSRK
  5. TREPROSTINIL [Suspect]
     Active Substance: TREPROSTINIL
     Indication: Pulmonary arterial hypertension
     Dosage: 10 MG (2 TABLETS OF 5 MG), Q8H
     Route: 048
     Dates: start: 20180423
  6. ORENITRAM [Suspect]
     Active Substance: TREPROSTINIL
     Indication: Pulmonary arterial hypertension
     Route: 048
  7. TADALAFIL [Suspect]
     Active Substance: TADALAFIL
     Indication: Product used for unknown indication
  8. OPSUMIT [Suspect]
     Active Substance: MACITENTAN
     Indication: Product used for unknown indication
  9. CETIRIZINE HYDROCHLORIDE [Suspect]
     Active Substance: CETIRIZINE HYDROCHLORIDE
     Indication: Product used for unknown indication
  10. OXYBUTYNIN CHLORIDE [Suspect]
     Active Substance: OXYBUTYNIN CHLORIDE
     Indication: Product used for unknown indication
  11. PROLIA [Concomitant]
     Active Substance: DENOSUMAB
  12. BIFIDOBACTERIUM ANIMALIS LACTIS [Concomitant]
     Active Substance: BIFIDOBACTERIUM ANIMALIS LACTIS
  13. LASIX [Concomitant]
     Active Substance: FUROSEMIDE
  14. CALCIUM POLYCARBOPHIL [Concomitant]
     Active Substance: CALCIUM POLYCARBOPHIL
  15. CLONAZEPAM [Concomitant]
     Active Substance: CLONAZEPAM
  16. WARFARIN SODIUM [Concomitant]
     Active Substance: WARFARIN SODIUM
  17. KETOCONAZOLE [Concomitant]
     Active Substance: KETOCONAZOLE
  18. Sertraline HCL (Sertraline hydrochloride) [Concomitant]
  19. Sumatriptan succinate (Sumatriptan succinate) [Concomitant]
  20. QUETIAPINE FUMARATE [Concomitant]
     Active Substance: QUETIAPINE FUMARATE
  21. Prazosin HCL (Prazosin hydrochloride) [Concomitant]
  22. OXYGEN [Concomitant]
     Active Substance: OXYGEN
  23. Ondansetron odt (Ondansetron hydrochloride) [Concomitant]
  24. REMERON [Concomitant]
     Active Substance: MIRTAZAPINE
  25. FERROUS SULFATE [Concomitant]
     Active Substance: FERROUS SULFATE
  26. Loperamide (Loperamide hydrochloride) [Concomitant]

REACTIONS (2)
  - Headache [Unknown]
  - Diarrhoea [Not Recovered/Not Resolved]

NARRATIVE: CASE EVENT DATE: 20250101
